FAERS Safety Report 7932011 (Version 7)
Quarter: 2014Q1

REPORT INFORMATION
  Report Type: Report from Study
  Country: US (occurrence: US)
  Receive Date: 20110505
  Receipt Date: 20140110
  Transmission Date: 20141002
  Serious: Yes (Hospitalization)
  Sender: FDA-Public Use
  Company Number: US-BRISTOL-MYERS SQUIBB COMPANY-15710072

PATIENT
  Age: 80 Year
  Sex: Male
  Weight: 114.5 kg

DRUGS (13)
  1. IPILIMUMAB [Suspect]
     Indication: MALIGNANT MELANOMA
     Dosage: LAST DOSE ON 20MAY2011, NO OF COURSES:2,CYCLE 21DAYS,10MG/KG OVER 90MIN ON DAY 1 Q12 WEEKS
     Route: 042
     Dates: start: 20110316
  2. ATENOLOL [Suspect]
  3. OXYCODONE [Suspect]
  4. DURAGESIC [Concomitant]
  5. COUMADIN [Concomitant]
  6. FEOSOL [Concomitant]
  7. TERAZOSIN [Concomitant]
  8. PACERONE [Concomitant]
  9. ZYLOPRIM [Concomitant]
  10. DILAUDID [Concomitant]
  11. POTASSIUM [Concomitant]
  12. LASIX [Concomitant]
  13. ZYLOPRIM [Concomitant]

REACTIONS (10)
  - Adrenal insufficiency [Recovering/Resolving]
  - Hypokalaemia [Recovering/Resolving]
  - Ventricular tachycardia [Recovering/Resolving]
  - Dyspnoea [Recovering/Resolving]
  - Lethargy [Recovering/Resolving]
  - Muscular weakness [Recovering/Resolving]
  - Dysphagia [Recovering/Resolving]
  - Dehydration [Recovering/Resolving]
  - Lung infection [Recovering/Resolving]
  - Cardiac arrest [Recovering/Resolving]
